FAERS Safety Report 20531004 (Version 1)
Quarter: 2022Q1

REPORT INFORMATION
  Report Type: Spontaneous
  Country: TR (occurrence: TR)
  Receive Date: 20220301
  Receipt Date: 20220301
  Transmission Date: 20220423
  Serious: No
  Sender: FDA-Public Use
  Company Number: TR-LUPIN PHARMACEUTICALS INC.-2022-02545

PATIENT
  Age: 36 Year
  Sex: Female

DRUGS (4)
  1. DESLORATADINE [Suspect]
     Active Substance: DESLORATADINE
     Indication: Chronic spontaneous urticaria
     Dosage: UNK
     Route: 065
  2. BILASTINE [Suspect]
     Active Substance: BILASTINE
     Indication: Chronic spontaneous urticaria
     Dosage: UNK
     Route: 065
  3. EBASTINE [Suspect]
     Active Substance: EBASTINE
     Indication: Chronic spontaneous urticaria
     Dosage: UNK (INITIAL DOSAGE NOT STATED)
     Route: 065
  4. EBASTINE [Suspect]
     Active Substance: EBASTINE
     Dosage: 40 MG, QD
     Route: 065
     Dates: start: 201810

REACTIONS (2)
  - Drug ineffective for unapproved indication [Unknown]
  - Off label use [Unknown]
